FAERS Safety Report 26175056 (Version 1)
Quarter: 2025Q4

REPORT INFORMATION
  Report Type: Spontaneous
  Country: US (occurrence: None)
  Receive Date: 20251218
  Receipt Date: 20251218
  Transmission Date: 20260117
  Serious: Yes (Disabling, Other)
  Sender: FDA-CTU
  Company Number: None

PATIENT
  Age: 54 Year
  Sex: Female
  Weight: 94.95 kg

DRUGS (12)
  1. WEGOVY [Suspect]
     Active Substance: SEMAGLUTIDE
     Indication: Obesity
     Dates: start: 20250601
  2. BUPROPION [Concomitant]
     Active Substance: BUPROPION
  3. CLONAZEPAM [Concomitant]
     Active Substance: CLONAZEPAM
  4. WEGOVY [Concomitant]
     Active Substance: SEMAGLUTIDE
  5. hydrOXYzine 10 MG [Concomitant]
  6. FLUoxetine 20 MG capsule, [Concomitant]
  7. PANTOPRAZOLE [Concomitant]
     Active Substance: PANTOPRAZOLE
  8. TESTOSTERONE CYPIONATE [Concomitant]
     Active Substance: TESTOSTERONE CYPIONATE
  9. albuterol 90 mcg/actuation inhaler [Concomitant]
  10. IBUPROFEN [Concomitant]
     Active Substance: IBUPROFEN
  11. TYLENOL [Concomitant]
     Active Substance: ACETAMINOPHEN
  12. Lidocane patch 4% [Concomitant]

REACTIONS (1)
  - Allodynia [None]

NARRATIVE: CASE EVENT DATE: 20250801
